FAERS Safety Report 14605192 (Version 1)
Quarter: 2018Q1

REPORT INFORMATION
  Report Type: Spontaneous
  Country: US (occurrence: US)
  Receive Date: 20180306
  Receipt Date: 20180306
  Transmission Date: 20180509
  Serious: Yes (Other)
  Sender: FDA-Public Use
  Company Number: US-BAYER-2018-039674

PATIENT
  Age: 12 Year
  Sex: Female
  Weight: 117.96 kg

DRUGS (7)
  1. METFORMIN HCL [Concomitant]
     Active Substance: METFORMIN HYDROCHLORIDE
  2. ALKA-SELTZER GOLD [Suspect]
     Active Substance: ANHYDROUS CITRIC ACID\POTASSIUM BICARBONATE\SODIUM BICARBONATE
     Indication: GASTROINTESTINAL DISORDER
     Dosage: UNK
     Route: 048
     Dates: start: 2012
  3. LOSARTAN POTASSIUM. [Concomitant]
     Active Substance: LOSARTAN POTASSIUM
  4. CEPHALEXIN. [Concomitant]
     Active Substance: CEPHALEXIN
  5. TOLTERODINE L-TARTRATE [Concomitant]
     Active Substance: TOLTERODINE TARTRATE
  6. LANSOPRAZOLE. [Concomitant]
     Active Substance: LANSOPRAZOLE
  7. ALKA-SELTZER ORIGINAL [Suspect]
     Active Substance: ANHYDROUS CITRIC ACID\ASPIRIN\SODIUM BICARBONATE
     Dosage: UNK
     Route: 048
     Dates: start: 1961, end: 2015

REACTIONS (9)
  - Haematemesis [Recovered/Resolved]
  - Drug hypersensitivity [Unknown]
  - Gastrooesophageal reflux disease [Unknown]
  - Hypertension [Not Recovered/Not Resolved]
  - Diabetes mellitus [Not Recovered/Not Resolved]
  - Haematemesis [Recovered/Resolved]
  - Incorrect dosage administered [Unknown]
  - Incorrect drug administration duration [Unknown]
  - Drug intolerance [Unknown]

NARRATIVE: CASE EVENT DATE: 1961
